FAERS Safety Report 10255458 (Version 1)
Quarter: 2014Q2

REPORT INFORMATION
  Report Type: Spontaneous
  Country: US (occurrence: US)
  Receive Date: 20140624
  Receipt Date: 20140624
  Transmission Date: 20141212
  Serious: No
  Sender: FDA-Public Use
  Company Number: US-PFIZER INC-2014171847

PATIENT
  Age: 37 Year
  Sex: Female
  Weight: 105.67 kg

DRUGS (3)
  1. CELEBREX [Suspect]
     Indication: BACK PAIN
     Dosage: UNK, SINGLE
     Dates: start: 2006, end: 2006
  2. CELEBREX [Suspect]
     Indication: OSTEOARTHRITIS
  3. PHENTERMINE [Concomitant]
     Dosage: UNK

REACTIONS (4)
  - Abdominal pain upper [Unknown]
  - Malaise [Unknown]
  - Abdominal discomfort [Unknown]
  - Drug intolerance [Unknown]
